FAERS Safety Report 4427967-X (Version None)
Quarter: 2004Q3

REPORT INFORMATION
  Report Type: 
  Country: None (occurrence: None)
  Receive Date: 20040813
  Receipt Date: 20040804
  Transmission Date: 20050211
  Serious: Yes (Other)
  Sender: FDA-Public Use
  Company Number: S04-USA-04729-01

PATIENT
  Age: 61 Year
  Sex: Female

DRUGS (8)
  1. LEXAPRO [Suspect]
     Indication: DEPRESSION
     Dosage: 20 MG QD PO
     Route: 048
     Dates: end: 20040715
  2. LEXAPRO [Suspect]
     Indication: DEPRESSION
     Dosage: 10 MG QD PO
     Route: 048
     Dates: start: 20031101
  3. ZOLOFT [Suspect]
     Indication: DEPRESSION
     Dosage: 150 MG QD PO
     Route: 048
     Dates: end: 20040715
  4. TOPAMAX [Suspect]
     Dosage: 25 MG QD
     Dates: end: 20040715
  5. VIOXX [Suspect]
     Dosage: 25 MG QD
     Dates: end: 20040715
  6. ZOCOR [Concomitant]
  7. NEXIUM [Concomitant]
  8. MIRAPEX [Concomitant]

REACTIONS (2)
  - MOUTH ULCERATION [None]
  - TONGUE ULCERATION [None]
